FAERS Safety Report 13263105 (Version 1)
Quarter: 2017Q1

REPORT INFORMATION
  Report Type: Spontaneous
  Country: FR (occurrence: FR)
  Receive Date: 20170223
  Receipt Date: 20170223
  Transmission Date: 20170428
  Serious: Yes (Other)
  Sender: FDA-Public Use
  Company Number: FR-AMGEN-FRASP2017028335

PATIENT
  Age: 75 Year
  Sex: Male

DRUGS (11)
  1. METOJECT [Suspect]
     Active Substance: METHOTREXATE SODIUM
     Indication: RHEUMATOID ARTHRITIS
     Dosage: 20 MG, WEEKLY
     Route: 058
     Dates: start: 20050101
  2. CIALIS [Concomitant]
     Active Substance: TADALAFIL
  3. SPASFON [Concomitant]
     Active Substance: PHLOROGLUCINOL
  4. SPECIAFOLDINE [Concomitant]
     Active Substance: FOLIC ACID
     Dosage: UNK
     Dates: start: 20050101
  5. INEXIUM [Concomitant]
     Active Substance: ESOMEPRAZOLE
  6. ENBREL [Suspect]
     Active Substance: ETANERCEPT
     Indication: RHEUMATOID ARTHRITIS
     Dosage: 50 MG, WEEKLY
     Route: 058
     Dates: start: 201604
  7. CRESTOR [Concomitant]
     Active Substance: ROSUVASTATIN CALCIUM
  8. LOPRAZOLAM [Concomitant]
     Active Substance: LOPRAZOLAM
  9. CELEBREX [Concomitant]
     Active Substance: CELECOXIB
     Dosage: UNK UNK, AS NEEDED
  10. UVEDOSE [Concomitant]
     Active Substance: CHOLECALCIFEROL
  11. CACIT D3 [Concomitant]
     Active Substance: CALCIUM\CHOLECALCIFEROL

REACTIONS (1)
  - Extramammary Paget^s disease [Not Recovered/Not Resolved]

NARRATIVE: CASE EVENT DATE: 20160915
